FAERS Safety Report 15979194 (Version 1)
Quarter: 2019Q1

REPORT INFORMATION
  Report Type: Spontaneous
  Country: US (occurrence: US)
  Receive Date: 20190216
  Receipt Date: 20190216
  Transmission Date: 20190418
  Serious: Yes (Other)
  Sender: FDA-Public Use
  Company Number: None

PATIENT
  Age: 36 Year
  Sex: Female
  Weight: 90 kg

DRUGS (3)
  1. LEVOFLOXACIN. [Suspect]
     Active Substance: LEVOFLOXACIN
     Indication: INFLUENZA
     Dosage: ?          QUANTITY:7 TABLET(S);?
     Route: 048
     Dates: start: 20190201, end: 20190204
  2. HORMONAL BALANCE [Concomitant]
  3. TURMERIC [Concomitant]
     Active Substance: HERBALS\TURMERIC

REACTIONS (12)
  - Cold sweat [None]
  - Pyrexia [None]
  - Depression [None]
  - Rash [None]
  - Amnesia [None]
  - Dehydration [None]
  - Insomnia [None]
  - Dyspnoea [None]
  - Oropharyngeal pain [None]
  - Gait disturbance [None]
  - Palpitations [None]
  - Rash erythematous [None]

NARRATIVE: CASE EVENT DATE: 20190202
